FAERS Safety Report 14889909 (Version 1)
Quarter: 2018Q2

REPORT INFORMATION
  Report Type: Spontaneous
  Country: US (occurrence: US)
  Receive Date: 20180514
  Receipt Date: 20180514
  Transmission Date: 20180711
  Serious: Yes (Hospitalization, Other)
  Sender: FDA-Public Use
  Company Number: US-TEVA-2018-US-890059

PATIENT
  Sex: Female

DRUGS (3)
  1. BACLOFEN. [Suspect]
     Active Substance: BACLOFEN
     Indication: MUSCLE SPASTICITY
     Route: 037
  2. LIORESAL [Suspect]
     Active Substance: BACLOFEN
     Indication: MUSCLE SPASTICITY
     Route: 037
     Dates: start: 2015, end: 20160127
  3. ORAL BACLOFEN [Suspect]
     Active Substance: BACLOFEN
     Indication: MUSCLE SPASTICITY
     Dosage: 80 MILLIGRAM DAILY;
     Route: 048

REACTIONS (16)
  - Weight decreased [Recovered/Resolved]
  - Confusional state [Recovered/Resolved]
  - Drug withdrawal syndrome [Unknown]
  - Fatigue [Recovered/Resolved]
  - Somnolence [Recovered/Resolved]
  - Emotional distress [Unknown]
  - Hypercapnia [Unknown]
  - Muscle spasticity [Unknown]
  - Thinking abnormal [Recovered/Resolved]
  - Impaired driving ability [Unknown]
  - Malaise [Unknown]
  - Pain in extremity [Recovered/Resolved]
  - Medication error [Unknown]
  - Pruritus [Unknown]
  - Pain [Recovered/Resolved]
  - Vomiting [Recovered/Resolved]
